FAERS Safety Report 6822713-4 (Version None)
Quarter: 2010Q3

REPORT INFORMATION
  Report Type: 
  Country: None (occurrence: None)
  Receive Date: 20100708
  Receipt Date: 20100701
  Transmission Date: 20110219
  Serious: Yes (Other)
  Sender: FDA-Public Use
  Company Number: GB-PFIZER INC-2006127934

PATIENT
  Age: 57 Year
  Sex: Male
  Weight: 99.8 kg

DRUGS (4)
  1. SUNITINIB MALATE [Suspect]
     Indication: RENAL CELL CARCINOMA
     Dosage: 50 MG, 1X/DAY, 4 WEEKS ON/2 WEEKS OFF
     Dates: start: 20060403
  2. ZOLEDRONIC ACID [Suspect]
     Dosage: UNK
     Route: 042
     Dates: start: 20060920, end: 20060920
  3. LANSOPRAZOLE [Concomitant]
     Dates: start: 20060726
  4. EUMOVATE [Concomitant]
     Dates: start: 20060831

REACTIONS (1)
  - OSTEONECROSIS OF JAW [None]
